FAERS Safety Report 8480256-9 (Version None)
Quarter: 2012Q2

REPORT INFORMATION
  Report Type: 
  Country: None (occurrence: None)
  Receive Date: 20120629
  Receipt Date: 20120611
  Transmission Date: 20120825
  Serious: Yes (Hospitalization)
  Sender: FDA-Public Use
  Company Number: PHHY2011CA097708

PATIENT
  Sex: Male

DRUGS (1)
  1. SANDOSTATIN LAR [Suspect]
     Indication: PANCREATIC FISTULA
     Dosage: 20 MG, QMO
     Route: 030
     Dates: start: 20111014

REACTIONS (6)
  - POST PROCEDURAL COMPLICATION [None]
  - CONSTIPATION [None]
  - PANCREATIC CYST [None]
  - MUSCLE SPASMS [None]
  - ABDOMINAL PAIN [None]
  - PANCREATIC ABSCESS [None]
